FAERS Safety Report 24391407 (Version 3)
Quarter: 2024Q4

REPORT INFORMATION
  Report Type: Spontaneous
  Country: CA (occurrence: CA)
  Receive Date: 20241003
  Receipt Date: 20241128
  Transmission Date: 20250115
  Serious: Yes (Other)
  Sender: PFIZER
  Company Number: CA-PFIZER INC-202300320661

PATIENT
  Age: 40 Year
  Sex: Female

DRUGS (2)
  1. RUXIENCE [Suspect]
     Active Substance: RITUXIMAB-PVVR
     Indication: Multiple sclerosis
     Dosage: 1000 MG, IV Q2 WEEKS X 2 DOSES THEN 1000 MG IV Q6 MONTHS
     Route: 042
     Dates: start: 20231115
  2. RUXIENCE [Suspect]
     Active Substance: RITUXIMAB-PVVR
     Dosage: 1000 MG, IV Q2 WEEKS X 2 DOSES THEN 1000 MG IV Q6 MONTHS
     Route: 042
     Dates: start: 20240527

REACTIONS (2)
  - Hysterectomy [Recovering/Resolving]
  - Off label use [Unknown]

NARRATIVE: CASE EVENT DATE: 20240919
